FAERS Safety Report 10027734 (Version 2)
Quarter: 2014Q2

REPORT INFORMATION
  Report Type: Spontaneous
  Country: US (occurrence: None)
  Receive Date: 20140221
  Receipt Date: 20140619
  Transmission Date: 20141212
  Serious: Yes (Other)
  Sender: FDA-Public Use
  Company Number: 2014-US-001177

PATIENT
  Age: 43 Year
  Sex: Female

DRUGS (7)
  1. XYREM [Suspect]
     Indication: NARCOLEPSY
     Dosage: 2.25 G, BID, ORAL
     Route: 048
     Dates: start: 200407
  2. XYREM [Suspect]
     Indication: NARCOLEPSY
     Dosage: 2.25 G, BID, ORAL
     Route: 048
     Dates: start: 200407
  3. XYREM [Suspect]
     Indication: NARCOLEPSY
     Dosage: 2.25 G, BID, ORAL
     Route: 048
     Dates: start: 200407
  4. OMEPRAZOLE (OMEPRAZOLE) [Concomitant]
  5. MVI (VITAMINS NOS) [Concomitant]
  6. CALCIUM (CALICUM) [Concomitant]
  7. VITAMIN B COMPLEX (VITAMIN B COMPLEX) [Concomitant]

REACTIONS (4)
  - Breast cancer female [None]
  - Muscle tightness [None]
  - Headache [None]
  - Biopsy lymph gland [None]
